FAERS Safety Report 5107047-0 (Version None)
Quarter: 2006Q3

REPORT INFORMATION
  Report Type: 
  Country: None (occurrence: None)
  Receive Date: 20060913
  Receipt Date: 20060907
  Transmission Date: 20061208
  Serious: Yes (Other)
  Sender: FDA-Public Use
  Company Number: 147406USA

PATIENT
  Sex: Female

DRUGS (1)
  1. MERCAPTOPURINE [Suspect]
     Indication: INFLAMMATORY BOWEL DISEASE

REACTIONS (1)
  - NON-HODGKIN'S LYMPHOMA [None]
